FAERS Safety Report 5453488-1 (Version None)
Quarter: 2007Q3

REPORT INFORMATION
  Report Type: 
  Country: None (occurrence: None)
  Receive Date: 20070913
  Receipt Date: 20070831
  Transmission Date: 20080115
  Serious: Yes (Hospitalization)
  Sender: FDA-Public Use
  Company Number: 2007-04064

PATIENT
  Age: 64 Year
  Sex: Female

DRUGS (4)
  1. PREDNISONE TAB [Suspect]
     Indication: HERPES ZOSTER
     Dosage: 4 TABLET, QAM/QPM AND TAPER, ORAL; 6 TABLET, QAM/QPM X 7 DAYS, ORAL
     Route: 048
     Dates: start: 20061101, end: 20061201
  2. PREDNISONE TAB [Suspect]
     Indication: HERPES ZOSTER
     Dosage: 4 TABLET, QAM/QPM AND TAPER, ORAL; 6 TABLET, QAM/QPM X 7 DAYS, ORAL
     Route: 048
     Dates: start: 20061201, end: 20070201
  3. ATENOLOL [Concomitant]
  4. HYDROCHLOROTHIAZIDE [Concomitant]

REACTIONS (10)
  - ACCIDENTAL OVERDOSE [None]
  - BACK PAIN [None]
  - BLOOD PRESSURE INCREASED [None]
  - BONE PAIN [None]
  - CATARACT [None]
  - INSOMNIA [None]
  - PHOTOPSIA [None]
  - THYROID MASS [None]
  - VISUAL ACUITY REDUCED TRANSIENTLY [None]
  - WEIGHT INCREASED [None]
